FAERS Safety Report 9987166 (Version 2)
Quarter: 2014Q2

REPORT INFORMATION
  Report Type: Spontaneous
  Country: US (occurrence: US)
  Receive Date: 20140307
  Receipt Date: 20140402
  Transmission Date: 20141212
  Serious: No
  Sender: FDA-Public Use
  Company Number: US-AMGEN-USASP2014009960

PATIENT
  Age: 66 Year
  Sex: Female

DRUGS (12)
  1. ENBREL [Suspect]
     Indication: RHEUMATOID ARTHRITIS
     Dosage: 50 MG, ONCE EVERY 7 TO 9 DAYS
     Route: 058
     Dates: start: 20130715, end: 20140304
  2. ACETAMINOPHEN [Concomitant]
     Dosage: 500 MG, TAKE 2 CAPSULES BY ORAL ROUTE EVERY 6
     Route: 048
     Dates: end: 20130826
  3. RANITIDINE [Concomitant]
     Dosage: UNK, UNK, AS DIRECTED
     Route: 048
     Dates: end: 20130826
  4. VITAMIN D3 [Concomitant]
     Dosage: 1000 UNIT, QD
     Dates: end: 20140303
  5. METHOTREXATE SODIUM [Concomitant]
     Dosage: 2.5 MG, 10 TABLET QWK
     Route: 048
     Dates: start: 20140213, end: 20140303
  6. FOLIC ACID [Concomitant]
     Dosage: 1 MG, 6 DAYS PER WEEK
     Route: 048
     Dates: end: 20140303
  7. LISINOPRIL AND HYDROCHLOROTHIAZIDE [Concomitant]
     Dosage: 20MG-12.5 MG, 0.5 TABLET EVERYDAY
     Route: 048
     Dates: end: 20130826
  8. ZOLPIDEM [Concomitant]
     Dosage: 5 MG, 1 OR 2 ORALLY AT BEDTIME
     Route: 048
     Dates: start: 20130612, end: 20140114
  9. TRAMADOL [Concomitant]
     Dosage: 50 MG, 1 TABLET AS NEEDED
     Route: 048
  10. CALCIUM CITRATE [Concomitant]
     Dosage: 2 TABS, BID
     Route: 048
  11. VITAMIN B12                        /00056201/ [Concomitant]
     Dosage: INJECT 1 ML EVERY 3 MONTHS
     Route: 030
  12. CITALOPRAM [Concomitant]
     Dosage: 20 MG, 1 TABLET QD
     Route: 048

REACTIONS (12)
  - Joint instability [Not Recovered/Not Resolved]
  - Hand deformity [Not Recovered/Not Resolved]
  - Nodule [Not Recovered/Not Resolved]
  - Hair disorder [Not Recovered/Not Resolved]
  - Drug administration error [Not Recovered/Not Resolved]
  - Arthralgia [Unknown]
  - Osteoarthritis [Unknown]
  - Enthesopathy [Unknown]
  - Foot deformity [Unknown]
  - Rotator cuff syndrome [Unknown]
  - Musculoskeletal pain [Unknown]
  - Injection site pain [Not Recovered/Not Resolved]
